FAERS Safety Report 5285881-4 (Version None)
Quarter: 2007Q1

REPORT INFORMATION
  Report Type: 
  Country: None (occurrence: None)
  Receive Date: 20070104
  Receipt Date: 20060818
  Transmission Date: 20070707
  Serious: Yes (Other)
  Sender: FDA-Public Use
  Company Number: BDI-008540

PATIENT
  Age: 40 Year
  Sex: Female

DRUGS (3)
  1. MULTIHANCE [Suspect]
     Indication: NUCLEAR MAGNETIC RESONANCE IMAGING BRAIN
     Dosage: 15 ML ONCE IV
     Route: 042
     Dates: start: 20060817, end: 20060817
  2. KLONOPIN [Concomitant]
  3. TOPAMAX [Concomitant]

REACTIONS (5)
  - ANXIETY [None]
  - CONVULSION [None]
  - DYSPNOEA [None]
  - NAUSEA [None]
  - VOMITING [None]
